FAERS Safety Report 4949696-6 (Version None)
Quarter: 2006Q1

REPORT INFORMATION
  Report Type: 
  Country: None (occurrence: None)
  Receive Date: 20060316
  Receipt Date: 20060227
  Transmission Date: 20060701
  Serious: Yes (Other)
  Sender: FDA-Public Use
  Company Number: DSA_27837_2006

PATIENT
  Age: 77 Year
  Sex: Female

DRUGS (3)
  1. CARDIZEM LA [Suspect]
     Indication: BLOOD PRESSURE MANAGEMENT
     Dosage: 180 MG Q DAY PO
     Route: 048
     Dates: start: 20060201, end: 20060201
  2. CARDIZEM LA [Suspect]
     Indication: BLOOD PRESSURE MANAGEMENT
     Dosage: 240 MG Q DAY PO
     Route: 048
     Dates: start: 20060201
  3. NEBULIZER [Concomitant]

REACTIONS (3)
  - COUGH [None]
  - OEDEMA PERIPHERAL [None]
  - UNEVALUABLE EVENT [None]
